FAERS Safety Report 4877984-0 (Version None)
Quarter: 2006Q1

REPORT INFORMATION
  Report Type: 
  Country: None (occurrence: None)
  Receive Date: 20060110
  Receipt Date: 20051227
  Transmission Date: 20060701
  Serious: Yes (Death)
  Sender: FDA-Public Use
  Company Number: 05H-087-0304024-00

PATIENT
  Age: 84 Year
  Sex: Male

DRUGS (2)
  1. PRECEDEX [Suspect]
     Indication: SEDATIVE THERAPY
     Dosage: 0.4 MCG/KG/HR, CONTINUOUS, INTRAVENOUS
     Route: 042
     Dates: start: 20051114, end: 20051115
  2. NICARDIPINE HCL [Concomitant]

REACTIONS (3)
  - CARDIAC ARREST [None]
  - MYOCARDIAL INFARCTION [None]
  - POST PROCEDURAL COMPLICATION [None]
